FAERS Safety Report 19914336 (Version 2)
Quarter: 2021Q4

REPORT INFORMATION
  Report Type: Report from Study
  Country: GB (occurrence: GB)
  Receive Date: 20211005
  Receipt Date: 20211201
  Transmission Date: 20220303
  Serious: Yes (Hospitalization)
  Sender: FDA-Public Use
  Company Number: GB-SAMSUNG BIOEPIS-SB-2021-23321

PATIENT
  Sex: Female

DRUGS (1)
  1. IMRALDI [Suspect]
     Active Substance: ADALIMUMAB
     Indication: Ankylosing spondylitis
     Route: 058

REACTIONS (9)
  - Rash pruritic [Unknown]
  - Rash [Unknown]
  - Rash erythematous [Unknown]
  - Burning sensation [Unknown]
  - Rash macular [Unknown]
  - Swelling face [Unknown]
  - Hypotension [Unknown]
  - Renal disorder [Unknown]
  - Oedema peripheral [Unknown]
